FAERS Safety Report 18561071 (Version 2)
Quarter: 2021Q1

REPORT INFORMATION
  Report Type: Spontaneous
  Country: MX (occurrence: MX)
  Receive Date: 20201130
  Receipt Date: 20210101
  Transmission Date: 20210419
  Serious: No
  Sender: FDA-Public Use
  Company Number: MX-TAKEDA-2020TUS052095

PATIENT

DRUGS (4)
  1. FIRAZYR [Suspect]
     Active Substance: ICATIBANT ACETATE
     Indication: RESPIRATORY DISTRESS
  2. FIRAZYR [Suspect]
     Active Substance: ICATIBANT ACETATE
     Indication: COVID-19
     Dosage: UNK, TID
     Route: 065
  3. FIRAZYR [Suspect]
     Active Substance: ICATIBANT ACETATE
     Indication: RESPIRATORY DISTRESS
  4. FIRAZYR [Suspect]
     Active Substance: ICATIBANT ACETATE
     Indication: COVID-19
     Dosage: UNK, TID
     Route: 065

REACTIONS (2)
  - Product use in unapproved indication [Unknown]
  - No adverse event [Unknown]
